FAERS Safety Report 4349119-4 (Version None)
Quarter: 2004Q2

REPORT INFORMATION
  Report Type: 
  Country: None (occurrence: None)
  Receive Date: 20040427
  Receipt Date: 20040427
  Transmission Date: 20050107
  Serious: Yes (Hospitalization)
  Sender: FDA-Public Use
  Company Number: None

PATIENT
  Sex: Male
  Weight: 72.5755 kg

DRUGS (12)
  1. METOCLOPRAMIDE [Suspect]
     Indication: CONSTIPATION
     Dosage: 10 MG QID ORAL
     Route: 048
     Dates: start: 20000407, end: 20040409
  2. SENNA 8.6 MG [Suspect]
     Indication: CONSTIPATION
     Dosage: 17.6 MG TID ORAL
     Route: 048
     Dates: start: 20040303, end: 20040409
  3. COMBIVENT [Concomitant]
  4. ALBUTEROL [Concomitant]
  5. COLCHICINE [Concomitant]
  6. SIMETHICONE [Concomitant]
  7. ATENOLOL [Concomitant]
  8. OMERAZOLE [Concomitant]
  9. MAALOX [Concomitant]
  10. MULTI-VITAMIN [Concomitant]
  11. IRON SULFATETHIAMIN COMPOUND TAB [Concomitant]
  12. CHLORPHENIRAMINE MALEATE [Concomitant]

REACTIONS (2)
  - DRUG ABUSER [None]
  - ILEUS PARALYTIC [None]
